FAERS Safety Report 5129208-7 (Version None)
Quarter: 2006Q3

REPORT INFORMATION
  Report Type: 
  Country: None (occurrence: None)
  Receive Date: 20060927
  Receipt Date: 20060915
  Transmission Date: 20061208
  Serious: Yes (Hospitalization)
  Sender: FDA-Public Use
  Company Number: 200610723

PATIENT
  Age: 48 Year
  Sex: Female

DRUGS (1)
  1. SANDOGLOBULIN [Suspect]
     Dosage: 12 G DAILY IV
     Route: 042
     Dates: start: 20060829, end: 20060829

REACTIONS (5)
  - ENTEROBACTER INFECTION [None]
  - HYPERTHERMIA [None]
  - INFUSION RELATED REACTION [None]
  - SEPSIS [None]
  - STAPHYLOCOCCAL INFECTION [None]
